FAERS Safety Report 23256741 (Version 1)
Quarter: 2023Q4

REPORT INFORMATION
  Report Type: Spontaneous
  Country: CA (occurrence: CA)
  Receive Date: 20231204
  Receipt Date: 20231204
  Transmission Date: 20240109
  Serious: Yes (Other)
  Sender: FDA-Public Use
  Company Number: CA-ORGANON-O2311CAN003069

PATIENT
  Age: 42 Year
  Sex: Female

DRUGS (8)
  1. DIPROSONE [Suspect]
     Active Substance: BETAMETHASONE DIPROPIONATE
     Indication: Dermatitis atopic
     Dosage: UNK; DOSAGE FORM: NOT SPECIFIED
     Route: 061
  2. DIPROSONE [Suspect]
     Active Substance: BETAMETHASONE DIPROPIONATE
     Dosage: UNK; DOSAGE FORM: NOT SPECIFIED
     Route: 061
  3. DESONIDE [Suspect]
     Active Substance: DESONIDE
     Indication: Dermatitis atopic
     Dosage: UNK; DOSAGE FORM: NOT SPECIFIED
     Route: 061
  4. HYDROCORTISONE VALERATE [Suspect]
     Active Substance: HYDROCORTISONE VALERATE
     Indication: Dermatitis atopic
     Dosage: UNK
     Route: 061
  5. HYDROCORTISONE VALERATE [Suspect]
     Active Substance: HYDROCORTISONE VALERATE
     Dosage: UNK
     Route: 061
  6. DEXAMETHASONE [Concomitant]
     Active Substance: DEXAMETHASONE
     Indication: Product used for unknown indication
     Dosage: UNK; DOSAGE FORM: NOT SPECIFIED
     Route: 047
  7. FLUTICASONE [Concomitant]
     Active Substance: FLUTICASONE
     Indication: Rhinitis allergic
     Dosage: UNK
     Route: 065
  8. FLUTICASONE [Concomitant]
     Active Substance: FLUTICASONE
     Indication: Asthma

REACTIONS (14)
  - Alopecia [Recovered/Resolved]
  - Anhidrosis [Recovered/Resolved]
  - Drug ineffective [Recovered/Resolved]
  - Emotional distress [Recovered/Resolved]
  - Erythema [Recovered/Resolved]
  - Fatigue [Recovered/Resolved]
  - Madarosis [Recovered/Resolved]
  - Pain of skin [Recovered/Resolved]
  - Paraesthesia [Recovered/Resolved]
  - Skin burning sensation [Recovered/Resolved]
  - Skin exfoliation [Recovered/Resolved]
  - Skin oedema [Recovered/Resolved]
  - Skin swelling [Recovered/Resolved]
  - Topical steroid withdrawal reaction [Recovered/Resolved]
